FAERS Safety Report 4421640-X (Version None)
Quarter: 2004Q3

REPORT INFORMATION
  Report Type: 
  Country: None (occurrence: None)
  Receive Date: 20040809
  Receipt Date: 20040809
  Transmission Date: 20050211
  Serious: Yes (Hospitalization)
  Sender: FDA-Public Use
  Company Number: None

PATIENT
  Sex: Male
  Weight: 76.6579 kg

DRUGS (7)
  1. CIPSLATIN [Suspect]
     Indication: NON-SMALL CELL LUNG CANCER
     Dosage: 98 MG IV
     Route: 042
     Dates: start: 20040726
  2. CIPSLATIN [Suspect]
     Indication: NON-SMALL CELL LUNG CANCER
     Dosage: 98 MG IV
     Route: 042
     Dates: start: 20040802
  3. ETOPOSIDE [Suspect]
     Dosage: 98 MG IV
     Route: 042
     Dates: start: 20040726, end: 20040730
  4. ALPRAZOLAM [Concomitant]
  5. FLONASE [Concomitant]
  6. ZOFRAN [Concomitant]
  7. DARVOCET-N 100 [Concomitant]

REACTIONS (1)
  - DEHYDRATION [None]
